FAERS Safety Report 9712018 (Version 1)
Quarter: 2013Q4

REPORT INFORMATION
  Report Type: Spontaneous
  Country: US (occurrence: US)
  Receive Date: 20131126
  Receipt Date: 20131126
  Transmission Date: 20140711
  Serious: No
  Sender: FDA-Public Use
  Company Number: US-BRISTOL-MYERS SQUIBB COMPANY-19131663

PATIENT
  Age: 56 Year
  Sex: Male
  Weight: 83.9 kg

DRUGS (7)
  1. BYDUREON 2MG SUSPENSION [Suspect]
     Indication: TYPE 2 DIABETES MELLITUS
     Route: 058
     Dates: start: 20130630
  2. GLUCOVANCE TABS 2.5 MG/500 MG [Concomitant]
     Dosage: 1DF= 2 TABS
     Route: 048
  3. JANUVIA [Concomitant]
     Route: 048
  4. BENAZEPRIL HCL [Concomitant]
     Route: 048
  5. PRAVASTATIN SODIUM [Concomitant]
     Route: 048
  6. WELLBUTRIN [Concomitant]
     Route: 048
  7. PANTOPRAZOLE [Concomitant]
     Route: 048

REACTIONS (1)
  - Injection site nodule [Unknown]
